FAERS Safety Report 8757006 (Version 3)
Quarter: 2012Q4

REPORT INFORMATION
  Report Type: 
  Country: US (occurrence: US)
  Receive Date: 20120828
  Receipt Date: 20120928
  Transmission Date: 20130627
  Serious: Yes (Hospitalization, Other)
  Sender: FDA-Public Use
  Company Number: US-009507513-2008-188067-NL

PATIENT

DRUGS (1)
  1. NUVARING [Suspect]
     Indication: CONTRACEPTION
     Dosage: DOSE TEXT: 3 WEEKS IN/ 1 WEEK OUT, CONTINUING: NO
     Dates: start: 20060520, end: 20061203

REACTIONS (7)
  - Pulmonary embolism [Recovered/Resolved]
  - Pleurisy [Unknown]
  - Bronchitis [Unknown]
  - Dermatitis contact [Unknown]
  - Ovarian cyst [Unknown]
  - Pulmonary embolism [Unknown]
  - Hypocoagulable state [Unknown]
